FAERS Safety Report 15264875 (Version 3)
Quarter: 2018Q3

REPORT INFORMATION
  Report Type: Spontaneous
  Country: GB (occurrence: GB)
  Receive Date: 20180810
  Receipt Date: 20180905
  Transmission Date: 20181010
  Serious: Yes (Hospitalization, Other)
  Sender: FDA-Public Use
  Company Number: GB-STRIDES ARCOLAB LIMITED-2018SP006692

PATIENT

DRUGS (9)
  1. MESALAZINE [Suspect]
     Active Substance: MESALAMINE
     Dosage: 2.4 G, PER DAY
     Route: 065
  2. PREDNISOLONE. [Suspect]
     Active Substance: PREDNISOLONE
     Dosage: 20 MG/DAY
     Route: 065
  3. MESALAZINE [Suspect]
     Active Substance: MESALAMINE
     Dosage: 4.8 G, PER DAY (2.4 G, TWICE DAILY)
     Route: 065
  4. PREDNISOLONE. [Suspect]
     Active Substance: PREDNISOLONE
     Indication: INFLAMMATORY BOWEL DISEASE
     Dosage: UNK, LOW DOSE
     Route: 065
  5. TACROLIMUS. [Suspect]
     Active Substance: TACROLIMUS
     Indication: INFLAMMATORY BOWEL DISEASE
  6. MESALAZINE [Suspect]
     Active Substance: MESALAMINE
     Indication: CHOLANGITIS SCLEROSING
     Dosage: 800 MG, BID
     Route: 065
  7. TACROLIMUS. [Suspect]
     Active Substance: TACROLIMUS
     Indication: LIVER TRANSPLANT
     Dosage: UNK
     Route: 065
  8. PREDNISOLONE. [Suspect]
     Active Substance: PREDNISOLONE
     Indication: LIVER TRANSPLANT
     Dosage: UNK, ONCE DAILY (TAPERING DOSE)
     Route: 065
  9. PREDNISOLONE. [Suspect]
     Active Substance: PREDNISOLONE
     Dosage: 40 MG PER DAY, REDUCING DOSE
     Route: 065

REACTIONS (3)
  - Disease recurrence [Unknown]
  - Treatment failure [Unknown]
  - Off label use [Unknown]
